FAERS Safety Report 8405780-6 (Version None)
Quarter: 2012Q2

REPORT INFORMATION
  Report Type: 
  Country: None (occurrence: None)
  Receive Date: 20120529
  Receipt Date: 20060417
  Transmission Date: 20120825
  Serious: Yes (Hospitalization)
  Sender: FDA-Public Use
  Company Number: 02100-JPN-06-0214

PATIENT
  Age: 78 Year
  Sex: Female

DRUGS (6)
  1. NORVASC [Concomitant]
  2. BEZATOL (BEZAFIBRATE) [Concomitant]
  3. KOLANTYL (DICYCLOVERINE HYDROCHLORIDE, MAGNESIUM OXIDE, METHYLCELLULOS [Concomitant]
  4. LENDORM [Concomitant]
  5. PLETAL [Suspect]
     Dosage: 100 MG, QD, ORAL
     Route: 048
     Dates: start: 20060404, end: 20060411
  6. OLMESARTAN MEDOXOMIL [Concomitant]

REACTIONS (2)
  - RASH [None]
  - RASH ERYTHEMATOUS [None]
